FAERS Safety Report 4295674-2 (Version None)
Quarter: 2004Q1

REPORT INFORMATION
  Report Type: 
  Country: None (occurrence: None)
  Receive Date: 20040216
  Receipt Date: 20030811
  Transmission Date: 20041129
  Serious: No
  Sender: FDA-Public Use
  Company Number: US-GLAXOSMITHKLINE-A0420594A

PATIENT
  Age: 34 Year
  Sex: Female

DRUGS (1)
  1. PAXIL [Suspect]
     Dosage: 30MG ALTERNATE DAYS
     Route: 048

REACTIONS (5)
  - NAUSEA [None]
  - PALPITATIONS [None]
  - PARAESTHESIA [None]
  - PARAESTHESIA ORAL [None]
  - PREGNANCY [None]
